FAERS Safety Report 8604376-0 (Version None)
Quarter: 2012Q3

REPORT INFORMATION
  Report Type: 
  Country: None (occurrence: None)
  Receive Date: 20120820
  Receipt Date: 20120809
  Transmission Date: 20120928
  Serious: Yes (Other)
  Sender: FDA-Public Use
  Company Number: US-BAYER-2011-031829

PATIENT
  Age: 43 Year
  Sex: Female

DRUGS (4)
  1. YASMIN [Suspect]
     Dosage: UNK
     Dates: start: 20010801, end: 20091101
  2. YAZ [Suspect]
     Indication: CONTRACEPTION
     Dosage: UNK
     Dates: start: 20010801, end: 20091101
  3. YAZ [Suspect]
     Indication: ACNE
  4. DROSPIRENONE AND ETHINYL ESTRADIOL [Suspect]
     Dosage: UNK
     Dates: start: 20010801, end: 20091101

REACTIONS (4)
  - THROMBOSIS [None]
  - PAIN [None]
  - INJURY [None]
  - THROMBOPHLEBITIS SUPERFICIAL [None]
